FAERS Safety Report 15041659 (Version 2)
Quarter: 2018Q3

REPORT INFORMATION
  Report Type: Spontaneous
  Country: LV (occurrence: LV)
  Receive Date: 20180621
  Receipt Date: 20180706
  Transmission Date: 20181010
  Serious: Yes (Hospitalization, Other)
  Sender: FDA-Public Use
  Company Number: LV-ROCHE-2143091

PATIENT
  Sex: Female
  Weight: 65 kg

DRUGS (2)
  1. ROACTEMRA [Suspect]
     Active Substance: TOCILIZUMAB
     Indication: RHEUMATOID ARTHRITIS
     Route: 042
     Dates: start: 2013, end: 2016
  2. PREDNISOLONI [Concomitant]
     Dosage: 5?10 MG PER DAY
     Route: 065

REACTIONS (2)
  - Arthritis bacterial [Unknown]
  - Osteitis [Unknown]

NARRATIVE: CASE EVENT DATE: 201802
